FAERS Safety Report 5859236-5 (Version None)
Quarter: 2008Q3

REPORT INFORMATION
  Report Type: 
  Country: None (occurrence: None)
  Receive Date: 20080825
  Receipt Date: 20080808
  Transmission Date: 20090109
  Serious: Yes (Hospitalization, Other)
  Sender: FDA-Public Use
  Company Number: RENA-1000210

PATIENT
  Age: 60 Year
  Sex: Male
  Weight: 54.5 kg

DRUGS (6)
  1. RENAGEL [Suspect]
     Indication: HYPERPHOSPHATAEMIA
     Dosage: 2.0 G, TID, ORAL; 1.5 G, TID, ORAL
     Route: 048
     Dates: start: 20040105, end: 20070225
  2. RENAGEL [Suspect]
     Indication: HYPERPHOSPHATAEMIA
     Dosage: 2.0 G, TID, ORAL; 1.5 G, TID, ORAL
     Route: 048
     Dates: start: 20070226
  3. CALTAN (CALCIUM CARBONATE) TABLET [Concomitant]
  4. YOKUININ TABLET [Concomitant]
  5. ADALAT L (NIFEDIPINE) TABLET [Concomitant]
  6. SAIKOKEISHIKANKYOTO [Concomitant]

REACTIONS (6)
  - BLOOD CULTURE POSITIVE [None]
  - DIVERTICULITIS [None]
  - ESCHERICHIA INFECTION [None]
  - PYREXIA [None]
  - REFUSAL OF TREATMENT BY PATIENT [None]
  - SEPSIS [None]
